FAERS Safety Report 18871636 (Version 1)
Quarter: 2021Q1

REPORT INFORMATION
  Report Type: Spontaneous
  Country: GB (occurrence: GB)
  Receive Date: 20210210
  Receipt Date: 20210210
  Transmission Date: 20210420
  Serious: Yes (Other)
  Sender: FDA-Public Use
  Company Number: None

PATIENT
  Age: 44 Month
  Weight: 13 kg

DRUGS (5)
  1. MONTELUKAST SINGULAR [Suspect]
     Active Substance: MONTELUKAST SODIUM
     Indication: CHILDHOOD ASTHMA
     Dosage: ?          QUANTITY:1 TABLET(S);?
     Route: 048
     Dates: start: 20200504, end: 20200622
  2. WELL BABY MULTI VITAMIN LIQUID [Concomitant]
  3. CLENIN 100 [Concomitant]
  4. AZITHROMYCIN ANHYDROUS. [Concomitant]
     Active Substance: AZITHROMYCIN ANHYDROUS
  5. MONTELUKAST SINGULAR [Suspect]
     Active Substance: MONTELUKAST SODIUM
     Indication: WHEEZING
     Dosage: ?          QUANTITY:1 TABLET(S);?
     Route: 048
     Dates: start: 20200504, end: 20200622

REACTIONS (4)
  - Aggression [None]
  - Nightmare [None]
  - Intentional dose omission [None]
  - Hallucination [None]

NARRATIVE: CASE EVENT DATE: 20200510
